FAERS Safety Report 19728249 (Version 1)
Quarter: 2021Q3

REPORT INFORMATION
  Report Type: Spontaneous
  Country: GB (occurrence: GB)
  Receive Date: 20210820
  Receipt Date: 20210820
  Transmission Date: 20211014
  Serious: Yes (Life-Threatening, Other)
  Sender: FDA-Public Use
  Company Number: GB-MYLANLABS-2021M1054052

PATIENT
  Age: 3 Day
  Sex: Male
  Weight: 4 kg

DRUGS (1)
  1. MIRTAZAPINE. [Suspect]
     Active Substance: MIRTAZAPINE
     Indication: DEPRESSION
     Dosage: UNK, 15?22.5 MG
     Route: 048

REACTIONS (2)
  - Congenital hyperinsulinaemic hypoglycaemia [Recovering/Resolving]
  - Neuroglycopenia [Unknown]

NARRATIVE: CASE EVENT DATE: 20210816
